FAERS Safety Report 9767415 (Version 1)
Quarter: 2013Q4

REPORT INFORMATION
  Report Type: Spontaneous
  Country: US (occurrence: None)
  Receive Date: 20131003
  Receipt Date: 20131003
  Transmission Date: 20140711
  Serious: Yes (Death)
  Sender: FDA-Public Use
  Company Number: 2013AP008481

PATIENT
  Age: 47 Year
  Sex: Male

DRUGS (4)
  1. BUPROPION HYDROCHLORIDE [Suspect]
     Route: 048
  2. CITALOPRAM [Suspect]
     Route: 048
  3. ZOLPIDEM TARTRATE [Suspect]
     Route: 048
  4. SOLANUM DULCAMARA [Suspect]

REACTIONS (2)
  - Completed suicide [None]
  - Cardio-respiratory arrest [None]
